FAERS Safety Report 4903051-3 (Version None)
Quarter: 2006Q1

REPORT INFORMATION
  Report Type: 
  Country: None (occurrence: None)
  Receive Date: 20060207
  Receipt Date: 20051229
  Transmission Date: 20060701
  Serious: Yes (Hospitalization)
  Sender: FDA-Public Use
  Company Number: JP-ROCHE-430768

PATIENT
  Age: 40 Year
  Sex: Female

DRUGS (9)
  1. TAMIFLU [Suspect]
     Route: 048
     Dates: start: 20051221, end: 20051221
  2. TAMIFLU [Suspect]
     Route: 048
     Dates: start: 20051222, end: 20051223
  3. TAMIFLU [Suspect]
     Route: 048
     Dates: start: 20051224, end: 20051224
  4. EXCEGRAN [Suspect]
     Indication: EPILEPSY
     Route: 048
     Dates: start: 20050607, end: 20051220
  5. EXCEGRAN [Suspect]
     Route: 048
     Dates: start: 20051221, end: 20051224
  6. EXCEGRAN [Suspect]
     Route: 048
     Dates: start: 20051225
  7. TEGRETOL [Concomitant]
     Route: 048
  8. PHENYTOIN [Concomitant]
     Route: 048
  9. ACETAMINOPHEN [Concomitant]
     Route: 048
     Dates: start: 20051221, end: 20051222

REACTIONS (4)
  - ANXIETY [None]
  - CONVULSION [None]
  - PYREXIA [None]
  - SUICIDAL IDEATION [None]
